FAERS Safety Report 4429840-X (Version None)
Quarter: 2004Q3

REPORT INFORMATION
  Report Type: 
  Country: None (occurrence: None)
  Receive Date: 20040818
  Receipt Date: 20040818
  Transmission Date: 20050211
  Serious: No
  Sender: FDA-Public Use
  Company Number: None

PATIENT
  Age: 66 Year
  Sex: Male
  Weight: 117 kg

DRUGS (11)
  1. CASPOFUNGIN IV 50MG MERCK [Suspect]
     Indication: CANDIDIASIS
     Dosage: 50MG Q24H INTRAVENOUS
     Route: 042
     Dates: start: 20040506, end: 20040511
  2. INSULIN DRIP [Concomitant]
  3. CLONIDINE HCL [Concomitant]
  4. COLACE [Concomitant]
  5. LOPRESSOR [Concomitant]
  6. AMIODARONE [Concomitant]
  7. PRINIVIL [Concomitant]
  8. PROTONIX [Concomitant]
  9. METOCLOPRAMIDE [Concomitant]
  10. ZOFRAN [Concomitant]
  11. SANDOSTATIN [Concomitant]

REACTIONS (3)
  - BLOOD PRESSURE INCREASED [None]
  - HEART RATE INCREASED [None]
  - RESPIRATORY DISTRESS [None]
